FAERS Safety Report 10888876 (Version 2)
Quarter: 2015Q1

REPORT INFORMATION
  Report Type: Spontaneous
  Country: JP (occurrence: JP)
  Receive Date: 20150305
  Receipt Date: 20150313
  Transmission Date: 20150721
  Serious: Yes (Hospitalization)
  Sender: FDA-Public Use
  Company Number: JP-JNJFOC-20150218306

PATIENT
  Age: 77 Year
  Sex: Female

DRUGS (7)
  1. TRAMCET [Suspect]
     Active Substance: ACETAMINOPHEN\TRAMADOL
     Indication: MUSCULOSKELETAL PAIN
     Dosage: 1 DF X 4 PER 1 DAY
     Route: 048
     Dates: end: 201502
  2. MERISLON [Concomitant]
     Active Substance: BETAHISTINE MESILATE
     Route: 048
  3. TRAMCET [Suspect]
     Active Substance: ACETAMINOPHEN\TRAMADOL
     Indication: CEREBROVASCULAR ACCIDENT
     Dosage: 1 DF X 4 PER 1 DAY
     Route: 048
     Dates: end: 201502
  4. TRAMCET [Suspect]
     Active Substance: ACETAMINOPHEN\TRAMADOL
     Indication: HYPOAESTHESIA
     Dosage: 1 DF X 4 PER 1 DAY
     Route: 048
     Dates: end: 201502
  5. HAPSTAR [Concomitant]
     Route: 065
  6. AMOBAN [Concomitant]
     Active Substance: ZOPICLONE
     Route: 048
  7. DEPAS [Concomitant]
     Active Substance: ETIZOLAM
     Route: 048

REACTIONS (1)
  - Bladder dysfunction [Recovered/Resolved]
